FAERS Safety Report 24577344 (Version 1)
Quarter: 2024Q4

REPORT INFORMATION
  Report Type: Spontaneous
  Country: US (occurrence: US)
  Receive Date: 20241104
  Receipt Date: 20241104
  Transmission Date: 20250114
  Serious: No
  Sender: PERRIGO
  Company Number: US-PERRIGO-24US002209

PATIENT
  Age: 60 Year
  Sex: Male
  Weight: 104.31 kg

DRUGS (3)
  1. POLYETHYLENE GLYCOL 3350 [Suspect]
     Active Substance: POLYETHYLENE GLYCOL 3350
     Indication: Bowel preparation
     Dosage: 17 GRAMS, SINGLE
     Route: 048
     Dates: start: 20240228, end: 20240228
  2. POLYETHYLENE GLYCOL 3350 [Suspect]
     Active Substance: POLYETHYLENE GLYCOL 3350
     Dosage: 17 GRAMS, SINGLE
     Route: 048
     Dates: start: 20240228, end: 20240228
  3. POLYETHYLENE GLYCOL 3350 [Suspect]
     Active Substance: POLYETHYLENE GLYCOL 3350
     Dosage: 17 GRAMS, SINGLE
     Route: 048
     Dates: start: 20240228, end: 20240228

REACTIONS (4)
  - Paraesthesia [Recovered/Resolved]
  - Hypersensitivity [Recovered/Resolved]
  - Overdose [Unknown]
  - Off label use [Unknown]

NARRATIVE: CASE EVENT DATE: 20240228
